FAERS Safety Report 24133201 (Version 1)
Quarter: 2024Q3

REPORT INFORMATION
  Report Type: Report from Study
  Country: US (occurrence: None)
  Receive Date: 20240724
  Receipt Date: 20240724
  Transmission Date: 20241017
  Serious: Yes (Hospitalization)
  Sender: ASTRAZENECA
  Company Number: 2022A157884

PATIENT
  Sex: Male

DRUGS (1)
  1. LYNPARZA [Suspect]
     Active Substance: OLAPARIB
     Indication: Brain neoplasm malignant
     Dosage: 2 TABLETS BY MOUTH 2 TIMES A DAY
     Route: 048
     Dates: start: 202201

REACTIONS (1)
  - Full blood count decreased [Unknown]
